FAERS Safety Report 17682888 (Version 3)
Quarter: 2021Q4

REPORT INFORMATION
  Report Type: Spontaneous
  Country: US (occurrence: US)
  Receive Date: 20200420
  Receipt Date: 20211012
  Transmission Date: 20220304
  Serious: Yes (Other)
  Sender: FDA-Public Use
  Company Number: 2020SE51932

PATIENT
  Age: 20550 Day
  Sex: Female

DRUGS (29)
  1. NEXIUM [Suspect]
     Active Substance: ESOMEPRAZOLE MAGNESIUM
     Indication: Gastrooesophageal reflux disease
     Route: 048
     Dates: start: 200001, end: 201312
  2. NEXIUM [Suspect]
     Active Substance: ESOMEPRAZOLE MAGNESIUM
     Indication: Gastrooesophageal reflux disease
     Route: 048
     Dates: start: 20000101, end: 20131231
  3. PRILOSEC [Suspect]
     Active Substance: OMEPRAZOLE MAGNESIUM
     Route: 048
     Dates: start: 200001, end: 201312
  4. PREVACID [Suspect]
     Active Substance: LANSOPRAZOLE
     Indication: Gastrooesophageal reflux disease
     Route: 065
     Dates: start: 200001, end: 201312
  5. PREVACID [Suspect]
     Active Substance: LANSOPRAZOLE
     Indication: Gastrooesophageal reflux disease
     Route: 065
     Dates: start: 20100402, end: 20101124
  6. PREVACID [Suspect]
     Active Substance: LANSOPRAZOLE
     Indication: Gastrooesophageal reflux disease
     Dosage: GENERIC
     Route: 065
     Dates: start: 20091013, end: 20100713
  7. LASIX [Concomitant]
     Active Substance: FUROSEMIDE
  8. POTASSIUM [Concomitant]
     Active Substance: POTASSIUM
  9. NITROGLYCERIN [Concomitant]
     Active Substance: NITROGLYCERIN
  10. SYNTHROID [Concomitant]
     Active Substance: LEVOTHYROXINE SODIUM
  11. CLONIDINE [Concomitant]
     Active Substance: CLONIDINE
  12. BENZONATATE [Concomitant]
     Active Substance: BENZONATATE
  13. HYDROCODONE [Concomitant]
     Active Substance: HYDROCODONE
  14. OXYCODONE [Concomitant]
     Active Substance: OXYCODONE
  15. AZITHROMYCIN ANHYDROUS [Concomitant]
     Active Substance: AZITHROMYCIN ANHYDROUS
  16. FENTANYL [Concomitant]
     Active Substance: FENTANYL
  17. XIFAXAAN [Concomitant]
  18. CLINDAMYCIN [Concomitant]
     Active Substance: CLINDAMYCIN
  19. GAVILYTE [Concomitant]
  20. PREDNISONE [Concomitant]
     Active Substance: PREDNISONE
  21. HYDROXYZINE [Concomitant]
     Active Substance: HYDROXYZINE HYDROCHLORIDE
  22. LEVAQUIN [Concomitant]
     Active Substance: LEVOFLOXACIN
  23. PROMETHAZINE [Concomitant]
     Active Substance: PROMETHAZINE HYDROCHLORIDE
  24. DIFLUNISAL [Concomitant]
     Active Substance: DIFLUNISAL
  25. CARAFATE [Concomitant]
     Active Substance: SUCRALFATE
  26. URSODIOL [Concomitant]
     Active Substance: URSODIOL
  27. NADOLOL [Concomitant]
     Active Substance: NADOLOL
  28. FERROUS SULFATE ANHYDROUS [Concomitant]
     Active Substance: FERROUS SULFATE ANHYDROUS
  29. RIFAXIMIN [Concomitant]
     Active Substance: RIFAXIMIN

REACTIONS (3)
  - Acute kidney injury [Not Recovered/Not Resolved]
  - Chronic kidney disease [Not Recovered/Not Resolved]
  - Renal failure [Unknown]

NARRATIVE: CASE EVENT DATE: 20101124
